FAERS Safety Report 5028505-3 (Version None)
Quarter: 2006Q2

REPORT INFORMATION
  Report Type: 
  Country: None (occurrence: None)
  Receive Date: 20060617
  Receipt Date: 20060613
  Transmission Date: 20061013
  Serious: Yes (Other)
  Sender: FDA-Public Use
  Company Number: FR-GILEAD-2006-0009726

PATIENT
  Sex: Female

DRUGS (1)
  1. VIREAD [Suspect]

REACTIONS (1)
  - SPINAL OSTEOARTHRITIS [None]
